FAERS Safety Report 14488159 (Version 1)
Quarter: 2018Q1

REPORT INFORMATION
  Report Type: Spontaneous
  Country: US (occurrence: US)
  Receive Date: 20180205
  Receipt Date: 20180205
  Transmission Date: 20180509
  Serious: No
  Sender: FDA-Public Use
  Company Number: US-MYLANLABS-2018M1008953

PATIENT
  Sex: Female
  Weight: 68.4 kg

DRUGS (2)
  1. EPIPEN [Suspect]
     Active Substance: EPINEPHRINE
     Indication: HYPOTHYROIDISM
  2. EPIPEN [Suspect]
     Active Substance: EPINEPHRINE
     Indication: ALLERGY TO ARTHROPOD STING
     Dosage: 0.3 MG, PRN
     Route: 030

REACTIONS (2)
  - Product use in unapproved indication [Unknown]
  - No adverse event [Unknown]
